FAERS Safety Report 5568082-1 (Version None)
Quarter: 2007Q4

REPORT INFORMATION
  Report Type: 
  Country: None (occurrence: None)
  Receive Date: 20071220
  Receipt Date: 20071214
  Transmission Date: 20080405
  Serious: Yes (Congenital Anomaly)
  Sender: FDA-Public Use
  Company Number: FR-NOVOPROD-268006

PATIENT
  Sex: Male
  Weight: 2.69 kg

DRUGS (2)
  1. LEVEMIR [Suspect]
     Indication: TYPE 1 DIABETES MELLITUS
     Dosage: 90 IU, QD
     Route: 015
     Dates: end: 20070101
  2. RAMIPRIL [Concomitant]
     Route: 015
     Dates: end: 20070101

REACTIONS (1)
  - VENTRICULAR SEPTAL DEFECT [None]
